FAERS Safety Report 5577916-6 (Version None)
Quarter: 2007Q4

REPORT INFORMATION
  Report Type: 
  Country: None (occurrence: None)
  Receive Date: 20071130
  Receipt Date: 20070712
  Transmission Date: 20080405
  Serious: No
  Sender: FDA-Public Use
  Company Number: US200707000633

PATIENT
  Age: 62 Year
  Sex: Male
  Weight: 99.8 kg

DRUGS (5)
  1. BYETTA [Suspect]
     Indication: TYPE 2 DIABETES MELLITUS
     Dosage: 5 UG, 2/D 10UG, 2/D SUBCUTANEOUS
     Route: 058
     Dates: start: 20070301, end: 20070401
  2. BYETTA [Suspect]
     Indication: TYPE 2 DIABETES MELLITUS
     Dosage: 5 UG, 2/D 10UG, 2/D SUBCUTANEOUS
     Route: 058
     Dates: start: 20070401
  3. METFORMIN HCL [Concomitant]
  4. LEVEMIR (INSULIN DETEMIR) [Concomitant]
  5. GLIPIZIDE [Concomitant]

REACTIONS (3)
  - ANAEMIA [None]
  - BLOOD GLUCOSE INCREASED [None]
  - DECREASED APPETITE [None]
